FAERS Safety Report 16880987 (Version 1)
Quarter: 2019Q4

REPORT INFORMATION
  Report Type: Spontaneous
  Country: US (occurrence: US)
  Receive Date: 20190807
  Receipt Date: 20190807
  Transmission Date: 20200122
  Serious: Yes (Other)
  Sender: FDA-Public Use
  Company Number: None

PATIENT
  Age: 61 Year
  Sex: Female
  Weight: 61.23 kg

DRUGS (1)
  1. RISONDRONATE SODIUM 150MG TAB [Suspect]
     Active Substance: RISEDRONATE SODIUM
     Indication: OSTEOPOROSIS
     Dosage: ?          QUANTITY:1 DF DOSAGE FORM;?
     Route: 048
     Dates: start: 20190802, end: 20190802

REACTIONS (1)
  - Influenza like illness [None]

NARRATIVE: CASE EVENT DATE: 20190802
